FAERS Safety Report 8057880-0 (Version None)
Quarter: 2012Q1

REPORT INFORMATION
  Report Type: 
  Country: None (occurrence: None)
  Receive Date: 20120120
  Receipt Date: 20090323
  Transmission Date: 20120608
  Serious: No
  Sender: FDA-Public Use
  Company Number: 2009BI009077

PATIENT
  Age: 32 Year
  Sex: Female

DRUGS (2)
  1. TYSABRI [Suspect]
     Indication: MULTIPLE SCLEROSIS
     Route: 042
     Dates: start: 20080827, end: 20091209
  2. TYSABRI [Suspect]
     Route: 042
     Dates: start: 20111208

REACTIONS (8)
  - EAR INFECTION [None]
  - DRY MOUTH [None]
  - FLUID RETENTION [None]
  - MUSCLE SPASTICITY [None]
  - STREPTOCOCCAL INFECTION [None]
  - NAUSEA [None]
  - PHARYNGITIS STREPTOCOCCAL [None]
  - COUGH [None]
